FAERS Safety Report 5085859-X (Version None)
Quarter: 2006Q3

REPORT INFORMATION
  Report Type: 
  Country: None (occurrence: None)
  Receive Date: 20060703
  Receipt Date: 20060227
  Transmission Date: 20061208
  Serious: No
  Sender: FDA-Public Use
  Company Number: 2006S1001724

PATIENT
  Age: 46 Year
  Sex: Female

DRUGS (12)
  1. CLOZAPINE [Suspect]
     Indication: SCHIZOPHRENIA, RESIDUAL TYPE
     Dosage: 200 MG;BID;ORAL
     Route: 048
     Dates: start: 20000901, end: 20060227
  2. FUROSEMIDE [Concomitant]
  3. RANITIDINE HYDROCHLORIDE [Concomitant]
  4. ALBUTEROL SPIROS [Concomitant]
  5. BENZTROPEINE [Concomitant]
  6. LEVOTHYROXINE SODIUM [Concomitant]
  7. PARACETAMOL [Concomitant]
  8. RISPERIDONE [Concomitant]
  9. BUPROPION HYDROCHLORIDE [Concomitant]
  10. FERROUS SULFATE TAB [Concomitant]
  11. VITAMINS NOS/MINERALS NOS [Concomitant]
  12. VALPROATE SODIUM [Concomitant]

REACTIONS (1)
  - GRANULOCYTOPENIA [None]
